FAERS Safety Report 7072155-4 (Version None)
Quarter: 2010Q4

REPORT INFORMATION
  Report Type: 
  Country: None (occurrence: None)
  Receive Date: 20101029
  Receipt Date: 20091203
  Transmission Date: 20110411
  Serious: No
  Sender: FDA-Public Use
  Company Number: A0834407A

PATIENT
  Age: 58 Year
  Sex: Female

DRUGS (12)
  1. ADVAIR DISKUS 100/50 [Suspect]
     Indication: ASTHMA
     Dosage: 1PUFF TWICE PER DAY
     Route: 055
     Dates: start: 20091121
  2. AVAPRO [Concomitant]
  3. CELEBREX [Concomitant]
  4. NEXIUM [Concomitant]
  5. ELAVIL [Concomitant]
  6. SINGULAIR [Concomitant]
  7. HYDROCHLOROTHIAZIDE [Concomitant]
  8. FEMARA [Concomitant]
  9. ALBUTEROL [Concomitant]
  10. CALCIUM [Concomitant]
  11. MULTI-VITAMIN [Concomitant]
  12. ZITHROMAX [Concomitant]

REACTIONS (1)
  - BLOOD GLUCOSE INCREASED [None]
